FAERS Safety Report 6313540-5 (Version None)
Quarter: 2009Q3

REPORT INFORMATION
  Report Type: 
  Country: None (occurrence: None)
  Receive Date: 20090818
  Receipt Date: 20090810
  Transmission Date: 20100115
  Serious: No
  Sender: FDA-Public Use
  Company Number: US-BAYER-200929703NA

PATIENT
  Age: 66 Year
  Sex: Female
  Weight: 79 kg

DRUGS (6)
  1. MAGNEVIST [Suspect]
     Indication: NUCLEAR MAGNETIC RESONANCE IMAGING BRAIN
     Dosage: TOTAL DAILY DOSE: 30 ML  UNIT DOSE: 15 ML
     Route: 042
     Dates: start: 20090806, end: 20090806
  2. PLAVIX [Concomitant]
  3. ASPIRIN [Concomitant]
  4. LISINOPRIL [Concomitant]
  5. VALIUM [Concomitant]
  6. AMITRIPYILINE [Concomitant]

REACTIONS (2)
  - BLOOD PRESSURE INCREASED [None]
  - CHEST PAIN [None]
